FAERS Safety Report 5781465-X (Version None)
Quarter: 2008Q2

REPORT INFORMATION
  Report Type: 
  Country: None (occurrence: None)
  Receive Date: 20080623
  Receipt Date: 20070731
  Transmission Date: 20081010
  Serious: No
  Sender: FDA-Public Use
  Company Number: US-ASTRAZENECA-2007UW18398

PATIENT
  Age: 8 Year
  Sex: Female
  Weight: 29.5 kg

DRUGS (4)
  1. ENTOCORT EC [Suspect]
     Indication: CROHN'S DISEASE
     Route: 048
     Dates: start: 20070725
  2. AZULFIDINE EN-TABS [Concomitant]
  3. GAVISCON [Concomitant]
  4. MYLANTA [Concomitant]

REACTIONS (5)
  - DIZZINESS [None]
  - HEADACHE [None]
  - NAUSEA [None]
  - RASH [None]
  - SALIVARY HYPERSECRETION [None]
